FAERS Safety Report 15996405 (Version 2)
Quarter: 2019Q1

REPORT INFORMATION
  Report Type: Spontaneous
  Country: JP (occurrence: JP)
  Receive Date: 20190222
  Receipt Date: 20190314
  Transmission Date: 20190418
  Serious: Yes (Life-Threatening)
  Sender: FDA-Public Use
  Company Number: JP-BEH-2017085076

PATIENT
  Age: 39 Year
  Sex: Female
  Weight: 80 kg

DRUGS (6)
  1. BERINERT P [Suspect]
     Active Substance: HUMAN C1-ESTERASE INHIBITOR
     Dosage: 1000 IU, PRN
     Route: 065
     Dates: start: 201603
  2. TRANEXAMIC ACID. [Suspect]
     Active Substance: TRANEXAMIC ACID
     Indication: PROPHYLAXIS
  3. DAIKENTYUTO [Concomitant]
     Active Substance: HERBALS
     Indication: CONSTIPATION
     Dosage: 7.5G (2.5G X 3) Q8H
     Route: 048
  4. BERINERT P [Suspect]
     Active Substance: HUMAN C1-ESTERASE INHIBITOR
     Indication: HEREDITARY ANGIOEDEMA
     Dosage: 2V (2 VIALS)
     Route: 042
     Dates: start: 20171017, end: 20171017
  5. TRANEXAMIC ACID. [Suspect]
     Active Substance: TRANEXAMIC ACID
     Indication: HEREDITARY ANGIOEDEMA
     Dosage: 1500 MG (6 X 250MG) TID
     Route: 048
     Dates: end: 20171123
  6. BERINERT P [Suspect]
     Active Substance: HUMAN C1-ESTERASE INHIBITOR
     Indication: HEREDITARY ANGIOEDEMA
     Dosage: 1000 IU, 1 DAY (AT ONSET OF SEIZURE) PRN
     Route: 042
     Dates: start: 20170418, end: 20171026

REACTIONS (3)
  - Deep vein thrombosis [Recovered/Resolved]
  - Oedema peripheral [Recovered/Resolved]
  - Pulmonary embolism [Recovered/Resolved]

NARRATIVE: CASE EVENT DATE: 20171027
